FAERS Safety Report 7331944-9 (Version None)
Quarter: 2011Q1

REPORT INFORMATION
  Report Type: 
  Country: None (occurrence: None)
  Receive Date: 20110304
  Receipt Date: 20110224
  Transmission Date: 20110831
  Serious: Yes (Hospitalization, Other)
  Sender: FDA-Public Use
  Company Number: US-GENZYME-THYM-1001446

PATIENT
  Sex: Male
  Weight: 100 kg

DRUGS (13)
  1. THYMOGLOBULIN [Suspect]
     Indication: PROPHYLAXIS AGAINST TRANSPLANT REJECTION
     Dosage: 4.5 MG/KG, QOD
     Route: 042
     Dates: start: 20100216, end: 20100224
  2. PRILOSEC [Concomitant]
     Indication: PRODUCT USED FOR UNKNOWN INDICATION
     Dosage: 40 MG, QD
  3. LACTULOSE [Concomitant]
     Indication: PRODUCT USED FOR UNKNOWN INDICATION
     Dosage: 16 MG, QD
  4. ALBUTEROL [Concomitant]
     Indication: DYSPNOEA
     Dosage: 4 UNK, TID
  5. BACLOFEN [Concomitant]
     Indication: PRODUCT USED FOR UNKNOWN INDICATION
     Dosage: 10 MG, TID
  6. ATROVENT [Concomitant]
     Indication: PRODUCT USED FOR UNKNOWN INDICATION
     Dosage: 2 UNK, QID
  7. NEORAL [Concomitant]
     Indication: PRODUCT USED FOR UNKNOWN INDICATION
     Dosage: 75 MG, BID
  8. FLEXERIL [Concomitant]
     Indication: PRODUCT USED FOR UNKNOWN INDICATION
     Dosage: 5 MG, BID
  9. FLAGYL [Concomitant]
     Indication: PRODUCT USED FOR UNKNOWN INDICATION
     Dosage: UNK
  10. ALBUMIN (HUMAN) [Concomitant]
     Indication: PRODUCT USED FOR UNKNOWN INDICATION
     Dosage: 100 UNK, BID
  11. BUMEX [Concomitant]
     Indication: PRODUCT USED FOR UNKNOWN INDICATION
     Dosage: 2 MG, QD
  12. METOPROLOL [Concomitant]
     Indication: PRODUCT USED FOR UNKNOWN INDICATION
     Dosage: 75 MG, BID
  13. HEPARIN [Suspect]

REACTIONS (25)
  - SPLENOMEGALY [None]
  - PNEUMONIA [None]
  - EPSTEIN-BARR VIRUS INFECTION [None]
  - BLOOD UREA INCREASED [None]
  - PLEURAL EFFUSION [None]
  - BLOOD BILIRUBIN INCREASED [None]
  - RENAL FAILURE ACUTE [None]
  - OSMOTIC DEMYELINATION SYNDROME [None]
  - CONVULSION [None]
  - ANAEMIA [None]
  - THROMBOCYTOPENIA [None]
  - LEUKOPENIA [None]
  - VENOUS THROMBOSIS [None]
  - VENOUS HAEMORRHAGE [None]
  - PANCYTOPENIA [None]
  - DYSPHAGIA [None]
  - ATELECTASIS [None]
  - DEPRESSED LEVEL OF CONSCIOUSNESS [None]
  - BLOOD CREATININE INCREASED [None]
  - PSEUDOMONAS INFECTION [None]
  - RENAL INJURY [None]
  - RESPIRATORY DISTRESS [None]
  - PYREXIA [None]
  - KLEBSIELLA INFECTION [None]
  - CLOSTRIDIAL INFECTION [None]
